FAERS Safety Report 26160033 (Version 1)
Quarter: 2025Q4

REPORT INFORMATION
  Report Type: Spontaneous
  Country: US (occurrence: US)
  Receive Date: 20251216
  Receipt Date: 20251216
  Transmission Date: 20260117
  Serious: No
  Sender: LEO PHARM
  Company Number: US-LEO Pharma-384839

PATIENT
  Age: 20 Year
  Sex: Female

DRUGS (2)
  1. ADBRY [Suspect]
     Active Substance: TRALOKINUMAB-LDRM
     Indication: Eczema
     Dosage: TREATMENT IS ONGOING; 600 MG ON DAY 1 THEN AT 300 MG EVERY TWO WEEKS SUBCUTANEOUSLY
     Route: 058
     Dates: start: 202510
  2. ADBRY [Suspect]
     Active Substance: TRALOKINUMAB-LDRM
     Indication: Eczema
     Dosage: TREATMENT IS ONGOING; 600 MG ON DAY 1 THEN AT 300 MG EVERY TWO WEEKS SUBCUTANEOUSLY
     Route: 058

REACTIONS (3)
  - Rash erythematous [Unknown]
  - Rash [Unknown]
  - Rash erythematous [Unknown]
